FAERS Safety Report 5776419-3 (Version None)
Quarter: 2008Q2

REPORT INFORMATION
  Report Type: 
  Country: None (occurrence: None)
  Receive Date: 20080618
  Receipt Date: 20080609
  Transmission Date: 20081010
  Serious: Yes (Death, Other)
  Sender: FDA-Public Use
  Company Number: NL-BAYER-200814632GPV

PATIENT
  Age: 32 Year
  Sex: Female
  Weight: 58 kg

DRUGS (4)
  1. CAMPATH [Suspect]
     Indication: T-CELL DEPLETION
     Route: 042
     Dates: start: 20070713, end: 20070713
  2. FLUDARABINE PHOSPHATE [Suspect]
     Indication: BONE MARROW CONDITIONING REGIMEN
     Route: 048
     Dates: start: 20070703, end: 20070708
  3. ANTI-THYMOCYTE GLOBULIN NOS [Suspect]
     Indication: BONE MARROW CONDITIONING REGIMEN
     Dosage: UNIT DOSE: 175 MG
     Route: 042
     Dates: start: 20070709, end: 20070712
  4. BUSULPHAN [Suspect]
     Indication: BONE MARROW CONDITIONING REGIMEN
     Route: 042
     Dates: start: 20070706, end: 20070707

REACTIONS (6)
  - BRONCHOPULMONARY ASPERGILLOSIS [None]
  - CYTOMEGALOVIRUS INFECTION [None]
  - HERPES SIMPLEX [None]
  - LYMPHADENOPATHY [None]
  - MULTI-ORGAN FAILURE [None]
  - POST TRANSPLANT LYMPHOPROLIFERATIVE DISORDER [None]
